FAERS Safety Report 13210154 (Version 1)
Quarter: 2017Q1

REPORT INFORMATION
  Report Type: Spontaneous
  Country: US (occurrence: US)
  Receive Date: 20170210
  Receipt Date: 20170210
  Transmission Date: 20170428
  Serious: No
  Sender: FDA-Public Use
  Company Number: US-TEVA-732823ACC

PATIENT
  Age: 21 Year
  Sex: Female
  Weight: 69.46 kg

DRUGS (1)
  1. PARAGARD T 380A [Suspect]
     Active Substance: COPPER
     Indication: CONTRACEPTION
     Dates: start: 20161018, end: 20161229

REACTIONS (3)
  - Abdominal pain [Recovered/Resolved]
  - Vaginal haemorrhage [Unknown]
  - Pelvic pain [Recovered/Resolved]

NARRATIVE: CASE EVENT DATE: 20161018
